FAERS Safety Report 9912110 (Version 2)
Quarter: 2019Q4

REPORT INFORMATION
  Report Type: Spontaneous
  Country: CA (occurrence: CA)
  Receive Date: 20140219
  Receipt Date: 20191111
  Transmission Date: 20200122
  Serious: Yes (Other)
  Sender: FDA-Public Use
  Company Number: CA-BRISTOL-MYERS SQUIBB COMPANY-20217436

PATIENT
  Age: 3 Month
  Sex: Male

DRUGS (2)
  1. THIOTEPA. [Suspect]
     Active Substance: THIOTEPA
     Indication: CENTRAL NERVOUS SYSTEM NEOPLASM
     Dosage: 10 MILLIGRAM/KILOGRAM, QD
     Route: 065
  2. CARBOPLATIN. [Suspect]
     Active Substance: CARBOPLATIN
     Indication: CENTRAL NERVOUS SYSTEM NEOPLASM
     Dosage: 17 MILLIGRAM/KILOGRAM, QD
     Route: 065

REACTIONS (2)
  - Pulmonary vasculitis [Unknown]
  - Pulmonary arterial hypertension [Unknown]
